FAERS Safety Report 13790252 (Version 1)
Quarter: 2017Q3

REPORT INFORMATION
  Report Type: Spontaneous
  Country: US (occurrence: US)
  Receive Date: 20170725
  Receipt Date: 20170725
  Transmission Date: 20171127
  Serious: No
  Sender: FDA-Public Use
  Company Number: US-GALDERMA-US17001451

PATIENT
  Age: 28 Year
  Sex: Male
  Weight: 69.8 kg

DRUGS (1)
  1. ADAPALENE (ADAPALENE) CREAM, 0.1% [Suspect]
     Active Substance: ADAPALENE
     Indication: ACNE
     Dosage: 0.1%
     Route: 061
     Dates: start: 2013

REACTIONS (3)
  - Expired product administered [Recovered/Resolved]
  - Intentional product misuse [Recovered/Resolved]
  - Urine alcohol test positive [Unknown]

NARRATIVE: CASE EVENT DATE: 201604
